FAERS Safety Report 4601119-2 (Version None)
Quarter: 2005Q1

REPORT INFORMATION
  Report Type: 
  Country: None (occurrence: None)
  Receive Date: 20050307
  Receipt Date: 20050307
  Transmission Date: 20050727
  Serious: Yes (Other)
  Sender: FDA-Public Use
  Company Number: None

PATIENT
  Age: 29 Year
  Sex: Female
  Weight: 99.7913 kg

DRUGS (1)
  1. COLD EEZE NASAL SPRAY 1X3.36% QUIGLEY CORP [Suspect]
     Indication: NASOPHARYNGITIS
     Dosage: ONCE SPRAY EACH NASAL
     Route: 045
     Dates: start: 20050304, end: 20050304

REACTIONS (3)
  - BURNING SENSATION [None]
  - EYE IRRITATION [None]
  - SINUS DISORDER [None]
